FAERS Safety Report 4535713-4 (Version None)
Quarter: 2004Q4

REPORT INFORMATION
  Report Type: 
  Country: None (occurrence: None)
  Receive Date: 20041223
  Receipt Date: 20031229
  Transmission Date: 20050328
  Serious: No
  Sender: FDA-Public Use
  Company Number: US-GLAXOSMITHKLINE-A0490764A

PATIENT
  Age: 51 Year
  Sex: Male

DRUGS (4)
  1. FLONASE [Suspect]
     Indication: SINUS DISORDER
     Dosage: 4SPR PER DAY
     Route: 045
  2. ZETIA [Concomitant]
  3. CALAN [Concomitant]
  4. ASPIRIN [Concomitant]

REACTIONS (2)
  - ANOSMIA [None]
  - IRRITABILITY [None]
